FAERS Safety Report 20042348 (Version 1)
Quarter: 2021Q4

REPORT INFORMATION
  Report Type: Spontaneous
  Country: US (occurrence: US)
  Receive Date: 20211108
  Receipt Date: 20211108
  Transmission Date: 20220303
  Serious: No
  Sender: FDA-Public Use
  Company Number: US-BIOVITRUM-2021US9811

PATIENT
  Sex: Female

DRUGS (2)
  1. DOPTELET [Suspect]
     Active Substance: AVATROMBOPAG MALEATE
     Indication: Platelet count decreased
     Dates: start: 20211021
  2. PREDNISONE [Concomitant]
     Active Substance: PREDNISONE
     Dosage: 50MG TAPER

REACTIONS (4)
  - Joint swelling [Unknown]
  - Eructation [Unknown]
  - Flatulence [Unknown]
  - Abdominal distension [Unknown]
